FAERS Safety Report 15018672 (Version 1)
Quarter: 2018Q2

REPORT INFORMATION
  Report Type: Spontaneous
  Country: US (occurrence: US)
  Receive Date: 20180616
  Receipt Date: 20180616
  Transmission Date: 20180711
  Serious: Yes (Hospitalization, Other)
  Sender: FDA-Public Use
  Company Number: US-ACCORD-068285

PATIENT
  Age: 53 Year
  Sex: Female

DRUGS (5)
  1. CISPLATIN-AQ [Suspect]
     Active Substance: CISPLATIN
     Indication: NEUROENDOCRINE CARCINOMA METASTATIC
     Dates: start: 200708
  2. IODIXANOL. [Suspect]
     Active Substance: IODIXANOL
     Indication: NEUROENDOCRINE CARCINOMA METASTATIC
     Dates: start: 200708
  3. DOXORUBICIN [Suspect]
     Active Substance: DOXORUBICIN
     Indication: NEUROENDOCRINE CARCINOMA METASTATIC
     Dates: start: 200708
  4. OCTREOTIDE ACETATE. [Suspect]
     Active Substance: OCTREOTIDE ACETATE
     Indication: NEUROENDOCRINE CARCINOMA METASTATIC
     Dosage: CONTINUOUSLY INFUSED
     Dates: start: 200708
  5. MITOMYCIN. [Suspect]
     Active Substance: MITOMYCIN
     Indication: NEUROENDOCRINE CARCINOMA METASTATIC
     Dates: start: 200708

REACTIONS (7)
  - Pulmonary hypertension [Recovered/Resolved]
  - Intestinal ischaemia [Recovered/Resolved]
  - Off label use [Unknown]
  - Pneumatosis intestinalis [Recovered/Resolved]
  - Encephalopathy [Recovered/Resolved]
  - Inflammation [Recovered/Resolved]
  - Cardiac failure acute [Recovered/Resolved]

NARRATIVE: CASE EVENT DATE: 2007
